FAERS Safety Report 7790892-0 (Version None)
Quarter: 2011Q3

REPORT INFORMATION
  Report Type: 
  Country: None (occurrence: None)
  Receive Date: 20110930
  Receipt Date: 20110808
  Transmission Date: 20111222
  Serious: Yes (Other)
  Sender: FDA-Public Use
  Company Number: US-ASTRAZENECA-2011SE47745

PATIENT
  Sex: Male

DRUGS (1)
  1. NEXIUM [Suspect]
     Route: 048
     Dates: start: 20060101

REACTIONS (5)
  - NAUSEA [None]
  - DIABETIC NEUROPATHY [None]
  - SHOCK HYPOGLYCAEMIC [None]
  - ANXIETY [None]
  - DEPRESSION [None]
